FAERS Safety Report 4803168-8 (Version None)
Quarter: 2005Q4

REPORT INFORMATION
  Report Type: 
  Country: None (occurrence: None)
  Receive Date: 20051019
  Receipt Date: 20051010
  Transmission Date: 20060501
  Serious: Yes (Hospitalization)
  Sender: FDA-Public Use
  Company Number: US-MERCK-0510USA06630

PATIENT
  Age: 84 Year
  Sex: Female
  Weight: 68 kg

DRUGS (14)
  1. VIOXX [Suspect]
     Indication: NECK PAIN
     Route: 048
     Dates: start: 20000102, end: 20040804
  2. VIOXX [Suspect]
     Indication: PAIN IN EXTREMITY
     Route: 048
     Dates: start: 20000102, end: 20040804
  3. ZOCOR [Concomitant]
     Route: 065
  4. HYDROCHLOROTHIAZIDE [Concomitant]
     Route: 065
  5. NITROGLYCERIN [Concomitant]
     Route: 065
  6. DARVOCET-N 100 [Concomitant]
     Route: 065
  7. ASPIRIN [Concomitant]
     Route: 065
  8. FUROSEMIDE [Concomitant]
     Route: 065
  9. ISOSORBIDE [Concomitant]
     Route: 065
  10. PLAVIX [Concomitant]
     Route: 065
  11. METOPROLOL [Concomitant]
     Route: 065
  12. VICODIN [Concomitant]
     Route: 065
  13. FOSAMAX [Concomitant]
     Route: 065
  14. COUMADIN [Concomitant]
     Route: 065

REACTIONS (16)
  - ANAEMIA [None]
  - ARTERIOSCLEROSIS [None]
  - BACK INJURY [None]
  - BACK PAIN [None]
  - CAROTID ARTERY STENOSIS [None]
  - CORONARY ARTERY DISEASE [None]
  - CORONARY ARTERY INSUFFICIENCY [None]
  - DEEP VEIN THROMBOSIS [None]
  - HYPERCHOLESTEROLAEMIA [None]
  - MYOCARDIAL INFARCTION [None]
  - OSTEOARTHRITIS [None]
  - PELVIC FRACTURE [None]
  - PERIPHERAL VASCULAR DISORDER [None]
  - POST PROCEDURAL COMPLICATION [None]
  - POST PROCEDURAL HAEMATOMA [None]
  - SPINAL FRACTURE [None]
